FAERS Safety Report 7734065-6 (Version None)
Quarter: 2011Q3

REPORT INFORMATION
  Report Type: 
  Country: None (occurrence: None)
  Receive Date: 20110907
  Receipt Date: 20110901
  Transmission Date: 20111222
  Serious: Yes (Hospitalization)
  Sender: FDA-Public Use
  Company Number: FR-ROCHE-793406

PATIENT
  Sex: Male
  Weight: 78 kg

DRUGS (9)
  1. PEGINTERFERON ALFA-2A [Suspect]
     Indication: HEPATITIS C
     Route: 058
     Dates: start: 20110309
  2. INTELENCE [Concomitant]
     Route: 048
     Dates: start: 20100401
  3. RIBAVIRIN [Suspect]
     Indication: HEPATITIS C
     Dosage: FREQUENCY REPORTED AS : DAILY
     Route: 048
     Dates: start: 20110309
  4. ISENTRESS [Concomitant]
     Route: 048
     Dates: start: 20101220
  5. LOXAPINE HCL [Suspect]
     Route: 048
     Dates: start: 20110414
  6. METHADONE HCL [Suspect]
     Dosage: DRUG RECEIVING FOR MORE THAN 10 YEARS.
     Route: 048
  7. CLONAZEPAM [Concomitant]
  8. ACTOS [Concomitant]
     Indication: INSULIN RESISTANCE
     Route: 048
     Dates: start: 20101220
  9. LEPTICUR [Concomitant]
     Route: 048
     Dates: start: 20110414

REACTIONS (1)
  - DEEP VEIN THROMBOSIS [None]
